FAERS Safety Report 8119163-X (Version None)
Quarter: 2012Q1

REPORT INFORMATION
  Report Type: 
  Country: None (occurrence: None)
  Receive Date: 20120207
  Receipt Date: 20120207
  Transmission Date: 20120608
  Serious: Yes (Life-Threatening)
  Sender: FDA-Public Use
  Company Number: None

PATIENT
  Age: 54 Year
  Sex: Female
  Weight: 83.914 kg

DRUGS (1)
  1. REQUIP [Suspect]
     Indication: PERIODIC LIMB MOVEMENT DISORDER
     Dosage: .25MG UP TO 4MG EACH EVENING
     Route: 048
     Dates: start: 20111227, end: 20120127

REACTIONS (3)
  - NO THERAPEUTIC RESPONSE [None]
  - LIBIDO INCREASED [None]
  - SLEEP ATTACKS [None]
